FAERS Safety Report 18563559 (Version 1)
Quarter: 2020Q4

REPORT INFORMATION
  Report Type: Spontaneous
  Country: US (occurrence: US)
  Receive Date: 20201201
  Receipt Date: 20201201
  Transmission Date: 20210114
  Serious: Yes (Death, Other)
  Sender: FDA-Public Use
  Company Number: US-TAKEDA-2020TUS053645

PATIENT
  Age: 74 Year
  Sex: Male

DRUGS (9)
  1. PREVACID [Suspect]
     Active Substance: LANSOPRAZOLE
     Indication: GASTROOESOPHAGEAL REFLUX DISEASE
     Dosage: 20 MILLIGRAM
     Route: 048
     Dates: start: 2006
  2. PROTONIX [Suspect]
     Active Substance: PANTOPRAZOLE SODIUM
     Indication: GASTROOESOPHAGEAL REFLUX DISEASE
     Dosage: 20 MILLIGRAM
     Route: 048
     Dates: start: 2017, end: 2018
  3. NEXIUM [Suspect]
     Active Substance: ESOMEPRAZOLE MAGNESIUM
     Indication: GASTROOESOPHAGEAL REFLUX DISEASE
     Dosage: 20 MILLIGRAM
     Route: 048
     Dates: start: 2006
  4. LANSOPRAZOLE. [Suspect]
     Active Substance: LANSOPRAZOLE
     Indication: PRODUCT USED FOR UNKNOWN INDICATION
     Dosage: UNK
     Route: 048
  5. ASPIRIN (E.C.) [Concomitant]
     Active Substance: ASPIRIN
     Indication: CHEST PAIN
     Dosage: UNK
     Dates: start: 2001, end: 2009
  6. NEXIUM [Suspect]
     Active Substance: ESOMEPRAZOLE MAGNESIUM
     Dosage: UNK
     Route: 048
     Dates: start: 2006, end: 2016
  7. OXYCODONE [Concomitant]
     Active Substance: OXYCODONE
     Indication: ARTHRALGIA
     Dosage: UNK
     Dates: start: 2001, end: 2015
  8. OMEPRAZOLE. [Suspect]
     Active Substance: OMEPRAZOLE
     Indication: GASTROOESOPHAGEAL REFLUX DISEASE
     Dosage: 20 MILLIGRAM
     Route: 048
     Dates: start: 2006, end: 2018
  9. HYDROCODONE [Concomitant]
     Active Substance: HYDROCODONE
     Indication: ARTHRALGIA
     Dosage: UNK
     Dates: start: 2001, end: 2018

REACTIONS (2)
  - Chronic kidney disease [Unknown]
  - Death [Fatal]

NARRATIVE: CASE EVENT DATE: 2007
